FAERS Safety Report 14022202 (Version 1)
Quarter: 2017Q3

REPORT INFORMATION
  Report Type: Spontaneous
  Country: ES (occurrence: ES)
  Receive Date: 20170928
  Receipt Date: 20170928
  Transmission Date: 20171128
  Serious: Yes (Other)
  Sender: FDA-Public Use
  Company Number: ES-SA-2017SA167555

PATIENT
  Age: 42 Year
  Sex: Female
  Weight: 60 kg

DRUGS (2)
  1. ARAVA [Suspect]
     Active Substance: LEFLUNOMIDE
     Indication: PSORIATIC ARTHROPATHY
     Route: 048
     Dates: start: 20170628, end: 20170802
  2. CEMIDON [Concomitant]
     Active Substance: ISONIAZID
     Dosage: DOSE-300/50MG
     Route: 048
     Dates: start: 20170327, end: 20170802

REACTIONS (1)
  - Transaminases increased [Not Recovered/Not Resolved]
